FAERS Safety Report 14498344 (Version 2)
Quarter: 2018Q2

REPORT INFORMATION
  Report Type: Spontaneous
  Country: US (occurrence: US)
  Receive Date: 20180207
  Receipt Date: 20180601
  Transmission Date: 20180711
  Serious: No
  Sender: FDA-Public Use
  Company Number: US-ASTRAZENECA-2007BM11934

PATIENT
  Age: 24996 Day
  Sex: Female

DRUGS (7)
  1. BYDUREON BCISE [Suspect]
     Active Substance: EXENATIDE
     Route: 065
  2. BYDUREON [Suspect]
     Active Substance: EXENATIDE
     Dosage: PEN 2 MG
     Route: 065
  3. BYETTA [Suspect]
     Active Substance: EXENATIDE
     Indication: TYPE 2 DIABETES MELLITUS
     Route: 058
     Dates: start: 200707
  4. AMARYL [Concomitant]
     Active Substance: GLIMEPIRIDE
     Indication: TYPE 2 DIABETES MELLITUS
     Dosage: 4 MG, TID
  5. TANZEUM [Concomitant]
     Active Substance: ALBIGLUTIDE
     Dosage: LOWER DOSE
  6. PREDNISONE. [Suspect]
     Active Substance: PREDNISONE
     Route: 065
  7. TANZEUM [Concomitant]
     Active Substance: ALBIGLUTIDE
     Dosage: 50MG

REACTIONS (13)
  - Blood glucose increased [Unknown]
  - Injection site extravasation [Recovered/Resolved]
  - Wrong technique in product usage process [Unknown]
  - Therapy cessation [Unknown]
  - Injection site injury [Unknown]
  - Nausea [Unknown]
  - Drug effect incomplete [Unknown]
  - Drug hypersensitivity [Unknown]
  - Injection site haemorrhage [Unknown]
  - Abdominal discomfort [Unknown]
  - Injection site pain [Unknown]
  - Confusional state [Recovered/Resolved]
  - Injection site extravasation [Unknown]

NARRATIVE: CASE EVENT DATE: 200707
